FAERS Safety Report 7110959-X (Version None)
Quarter: 2010Q4

REPORT INFORMATION
  Report Type: 
  Country: None (occurrence: None)
  Receive Date: 20101118
  Receipt Date: 20091015
  Transmission Date: 20110411
  Serious: No
  Sender: FDA-Public Use
  Company Number: US-TEVA-212465USA

PATIENT
  Sex: Male

DRUGS (2)
  1. ALBUTEROL SULFATE AUTOHALER [Suspect]
     Dosage: 2-4 PUFFS PER DAY
     Route: 055
  2. FORMOTEROL FUMARATE [Concomitant]

REACTIONS (2)
  - APHONIA [None]
  - VOCAL CORD DISORDER [None]
